FAERS Safety Report 6385744-7 (Version None)
Quarter: 2009Q4

REPORT INFORMATION
  Report Type: 
  Country: None (occurrence: None)
  Receive Date: 20091002
  Receipt Date: 20081006
  Transmission Date: 20100525
  Serious: No
  Sender: FDA-Public Use
  Company Number: US-ASTRAZENECA-2008UW21722

PATIENT
  Age: 76 Year
  Sex: Female

DRUGS (3)
  1. ARIMIDEX [Suspect]
     Route: 048
     Dates: start: 20030101
  2. ARIMIDEX [Suspect]
     Route: 048
     Dates: start: 20080929
  3. LISINOPRIL [Concomitant]

REACTIONS (5)
  - BLOOD PRESSURE INCREASED [None]
  - COUGH [None]
  - DRY SKIN [None]
  - PAIN [None]
  - PRODUCTIVE COUGH [None]
